FAERS Safety Report 4745400-5 (Version None)
Quarter: 2005Q3

REPORT INFORMATION
  Report Type: 
  Country: None (occurrence: None)
  Receive Date: 20050815
  Receipt Date: 20050729
  Transmission Date: 20060218
  Serious: Yes (Other)
  Sender: FDA-Public Use
  Company Number: 2005108156

PATIENT
  Sex: Male

DRUGS (1)
  1. DRAMAMINE [Suspect]
     Dosage: 12 TABLETS ONCE, ORAL
     Route: 048
     Dates: start: 20050729, end: 20050729

REACTIONS (3)
  - EUPHORIC MOOD [None]
  - INTENTIONAL MISUSE [None]
  - OVERDOSE [None]
